FAERS Safety Report 4993531-7 (Version None)
Quarter: 2006Q2

REPORT INFORMATION
  Report Type: 
  Country: None (occurrence: None)
  Receive Date: 20060503
  Receipt Date: 20060503
  Transmission Date: 20061013
  Serious: Yes (Other)
  Sender: FDA-Public Use
  Company Number: None

PATIENT
  Age: 47 Year
  Sex: Male
  Weight: 81.6475 kg

DRUGS (1)
  1. LEVAQUIN [Suspect]
     Indication: SINUSITIS
     Dosage: 1 PILL DAILY PO
     Route: 048
     Dates: start: 20050303, end: 20050313

REACTIONS (5)
  - ARTHRITIS [None]
  - ARTHROPATHY [None]
  - MUSCLE DISORDER [None]
  - TENDON DISORDER [None]
  - TENDONITIS [None]
